FAERS Safety Report 23427851 (Version 1)
Quarter: 2024Q1

REPORT INFORMATION
  Report Type: Spontaneous
  Country: None (occurrence: FR)
  Receive Date: 20240122
  Receipt Date: 20240122
  Transmission Date: 20240409
  Serious: Yes (Hospitalization)
  Sender: FDA-Public Use
  Company Number: FR-B.Braun Medical Inc.-2151741

PATIENT
  Age: 21 Year
  Sex: Female

DRUGS (1)
  1. ACETAMINOPHEN [Suspect]
     Active Substance: ACETAMINOPHEN
     Dates: start: 20231201

REACTIONS (6)
  - Vomiting [None]
  - Vertigo [None]
  - Poisoning deliberate [None]
  - Abdominal pain [None]
  - Off label use [None]
  - Intentional overdose [None]
